FAERS Safety Report 7301371-9 (Version None)
Quarter: 2011Q1

REPORT INFORMATION
  Report Type: 
  Country: None (occurrence: None)
  Receive Date: 20110218
  Receipt Date: 20110204
  Transmission Date: 20110831
  Serious: Yes (Hospitalization, Other)
  Sender: FDA-Public Use
  Company Number: PHEH2009US13681

PATIENT
  Sex: Female

DRUGS (2)
  1. EXJADE [Suspect]
     Indication: BLOOD PRODUCT TRANSFUSION DEPENDENT
  2. EXJADE [Suspect]
     Indication: SICKLE CELL ANAEMIA
     Dosage: 1500 MG, QD
     Route: 048
     Dates: start: 19990101

REACTIONS (4)
  - DRUG EXPOSURE DURING PREGNANCY [None]
  - ABNORMAL BEHAVIOUR [None]
  - NORMAL NEWBORN [None]
  - SICKLE CELL ANAEMIA WITH CRISIS [None]
